FAERS Safety Report 8252222-X (Version None)
Quarter: 2012Q2

REPORT INFORMATION
  Report Type: 
  Country: None (occurrence: None)
  Receive Date: 20120402
  Receipt Date: 20110923
  Transmission Date: 20120825
  Serious: No
  Sender: FDA-Public Use
  Company Number: US-ABBOTT-11P-163-0858579-00

PATIENT
  Sex: Male
  Weight: 72.64 kg

DRUGS (6)
  1. ANDROGEL [Suspect]
     Indication: BLOOD TESTOSTERONE DECREASED
     Dosage: 4 PUMPS DAILY
     Route: 061
     Dates: start: 20100101, end: 20110101
  2. LISINOPRIL [Concomitant]
     Indication: HYPERTENSION
  3. TESTOSTERONE [Suspect]
     Indication: BLOOD TESTOSTERONE DECREASED
     Dates: end: 20110401
  4. KLONOPIN [Concomitant]
     Indication: ANXIETY
  5. METHADONE HCL [Concomitant]
     Indication: ARTHRALGIA
  6. ANDROGEL [Suspect]
     Route: 061
     Dates: start: 20110101

REACTIONS (2)
  - INCORRECT DOSE ADMINISTERED [None]
  - HEPATIC ENZYME INCREASED [None]
